FAERS Safety Report 7983581-0 (Version None)
Quarter: 2011Q4

REPORT INFORMATION
  Report Type: 
  Country: None (occurrence: None)
  Receive Date: 20111215
  Receipt Date: 20111208
  Transmission Date: 20120403
  Serious: Yes (Hospitalization, Other)
  Sender: FDA-Public Use
  Company Number: PHHO2010DE15450

PATIENT
  Sex: Male

DRUGS (4)
  1. TASIGNA [Suspect]
     Indication: CHRONIC MYELOID LEUKAEMIA
     Dosage: 400 MG, BID
     Route: 048
     Dates: start: 20101001, end: 20101028
  2. MIDAZOLAM [Suspect]
     Indication: CHRONIC MYELOID LEUKAEMIA
     Dosage: UNK
     Dates: start: 20100930
  3. TASIGNA [Suspect]
     Dosage: UNK
     Dates: start: 20101029, end: 20101111
  4. TASIGNA [Suspect]
     Dosage: 800 MG, QD
     Route: 048
     Dates: start: 20101001, end: 20111108

REACTIONS (5)
  - DIABETES MELLITUS [None]
  - IMPAIRED HEALING [None]
  - WOUND COMPLICATION [None]
  - DIABETIC VASCULAR DISORDER [None]
  - CONCOMITANT DISEASE PROGRESSION [None]
